FAERS Safety Report 20137601 (Version 2)
Quarter: 2022Q3

REPORT INFORMATION
  Report Type: Spontaneous
  Country: US (occurrence: US)
  Receive Date: 20211201
  Receipt Date: 20220705
  Transmission Date: 20221026
  Serious: Yes (Other)
  Sender: FDA-Public Use
  Company Number: US-GILEAD-2021-0557509

PATIENT
  Age: 57 Year
  Sex: Female
  Weight: 72.562 kg

DRUGS (39)
  1. STRIBILD [Suspect]
     Active Substance: COBICISTAT\ELVITEGRAVIR\EMTRICITABINE\TENOFOVIR DISOPROXIL FUMARATE
     Indication: HIV infection
     Dosage: UNK
     Route: 048
     Dates: start: 2012
  2. STRIBILD [Suspect]
     Active Substance: COBICISTAT\ELVITEGRAVIR\EMTRICITABINE\TENOFOVIR DISOPROXIL FUMARATE
     Dosage: UNK
     Route: 065
     Dates: start: 201511, end: 201707
  3. BIKTARVY [Concomitant]
     Active Substance: BICTEGRAVIR SODIUM\EMTRICITABINE\TENOFOVIR ALAFENAMIDE FUMARATE
  4. GENVOYA [Concomitant]
     Active Substance: COBICISTAT\ELVITEGRAVIR\EMTRICITABINE\TENOFOVIR ALAFENAMIDE FUMARATE
  5. COMBIVIR [Concomitant]
     Active Substance: LAMIVUDINE\ZIDOVUDINE
  6. EPIVIR [Concomitant]
     Active Substance: LAMIVUDINE
  7. VIRAMUNE XR [Concomitant]
     Active Substance: NEVIRAPINE
  8. ALBUTEROL [Concomitant]
     Active Substance: ALBUTEROL
  9. AMLODIPINE ADIPATE [Concomitant]
     Active Substance: AMLODIPINE ADIPATE
  10. ATORVASTATIN [Concomitant]
     Active Substance: ATORVASTATIN
  11. BISOPROLOL FUMARATE + HCTZ [Concomitant]
  12. BUDESONIDE\FORMOTEROL [Concomitant]
     Active Substance: BUDESONIDE\FORMOTEROL
  13. CYCLOBENZAPRINE [Concomitant]
     Active Substance: CYCLOBENZAPRINE
  14. DICLOFENAC [Concomitant]
     Active Substance: DICLOFENAC
  15. ELIQUIS [Concomitant]
     Active Substance: APIXABAN
  16. ESTRADIOL ACETATE [Concomitant]
     Active Substance: ESTRADIOL ACETATE
  17. FAMOTIDINE ACID REDUCER [Concomitant]
  18. ABILIFY [Concomitant]
     Active Substance: ARIPIPRAZOLE
  19. FLUCONAZOLE [Concomitant]
     Active Substance: FLUCONAZOLE
  20. FUROSEMIDE [Concomitant]
     Active Substance: FUROSEMIDE
  21. GABAPENTIN [Concomitant]
     Active Substance: GABAPENTIN
  22. HYDROXYZINE [Concomitant]
     Active Substance: HYDROXYZINE HYDROCHLORIDE
  23. INDOMETHACIN [Concomitant]
     Active Substance: INDOMETHACIN
  24. LAMOTRIGINE [Concomitant]
     Active Substance: LAMOTRIGINE
  25. LIDOCAINE HYDROCHLORIDE [Concomitant]
     Active Substance: LIDOCAINE HYDROCHLORIDE
  26. LOSARTAN [Concomitant]
     Active Substance: LOSARTAN
  27. METFORMIN HYDROCHLORIDE [Concomitant]
     Active Substance: METFORMIN HYDROCHLORIDE
  28. OMEPRAZOLE [Concomitant]
     Active Substance: OMEPRAZOLE
  29. ONDANSETRON [Concomitant]
     Active Substance: ONDANSETRON
  30. POTASSIUM CHLORIDE\SODIUM CHLORIDE [Concomitant]
     Active Substance: POTASSIUM CHLORIDE\SODIUM CHLORIDE
  31. PREDNISONE ACETATE [Concomitant]
     Active Substance: PREDNISONE ACETATE
  32. PROMETHAZINE [Concomitant]
     Active Substance: PROMETHAZINE HYDROCHLORIDE
  33. PROVENTIL HFA [SALBUTAMOL] [Concomitant]
  34. RANITIDINE HYDROCHLORIDE [Concomitant]
     Active Substance: RANITIDINE HYDROCHLORIDE
  35. SEROQUEL [Concomitant]
     Active Substance: QUETIAPINE FUMARATE
  36. SUMATRIPTAN [Concomitant]
     Active Substance: SUMATRIPTAN
  37. SYMBICORT [Concomitant]
     Active Substance: BUDESONIDE\FORMOTEROL FUMARATE DIHYDRATE
  38. VALACYCLOVIR [Concomitant]
     Active Substance: VALACYCLOVIR HYDROCHLORIDE
  39. ZOLPIDEM [Concomitant]
     Active Substance: ZOLPIDEM TARTRATE

REACTIONS (12)
  - Osteoporosis [Not Recovered/Not Resolved]
  - Bone demineralisation [Unknown]
  - Pain [Not Recovered/Not Resolved]
  - Emotional distress [Not Recovered/Not Resolved]
  - Anxiety [Not Recovered/Not Resolved]
  - Anhedonia [Not Recovered/Not Resolved]
  - Foot fracture [Not Recovered/Not Resolved]
  - Arthralgia [Unknown]
  - Hypoaesthesia [Unknown]
  - Spinal osteoarthritis [Unknown]
  - Mobility decreased [Unknown]
  - Depression [Unknown]

NARRATIVE: CASE EVENT DATE: 20170201
